FAERS Safety Report 6986539-3 (Version None)
Quarter: 2010Q3

REPORT INFORMATION
  Report Type: 
  Country: None (occurrence: None)
  Receive Date: 20100915
  Receipt Date: 20090715
  Transmission Date: 20110219
  Serious: No
  Sender: FDA-Public Use
  Company Number: US-WYE-H10180909

PATIENT
  Sex: Female
  Weight: 59.02 kg

DRUGS (3)
  1. PRISTIQ [Suspect]
     Indication: DEPRESSION
     Route: 048
     Dates: start: 20090714
  2. KLONOPIN [Concomitant]
  3. ABILIFY [Concomitant]

REACTIONS (3)
  - MYDRIASIS [None]
  - PHOTOPHOBIA [None]
  - VISION BLURRED [None]
